FAERS Safety Report 5723953-8 (Version None)
Quarter: 2008Q2

REPORT INFORMATION
  Report Type: 
  Country: None (occurrence: None)
  Receive Date: 20080430
  Receipt Date: 20080429
  Transmission Date: 20081010
  Serious: Yes (Life-Threatening, Hospitalization)
  Sender: FDA-Public Use
  Company Number: US-SANOFI-SYNTHELABO-F01200800712

PATIENT
  Sex: Female

DRUGS (4)
  1. BEVACIZUMAB [Suspect]
     Dosage: 370 MG
     Route: 042
  2. LEUCOVORIN CALCIUM [Suspect]
     Dosage: 730 MG
     Route: 042
  3. FLUOROURACIL [Suspect]
     Dosage: 585 MG IV BOLUS AND 3475 MG IV CONTINUOUS INFUSION FOR 46 HOURS, Q2W
     Route: 042
  4. ELOXATIN [Suspect]
     Indication: COLON CANCER
     Dosage: 120 MG
     Route: 042

REACTIONS (2)
  - MYOCARDIAL ISCHAEMIA [None]
  - THROMBOSIS [None]
